FAERS Safety Report 24216554 (Version 1)
Quarter: 2024Q3

REPORT INFORMATION
  Report Type: Spontaneous
  Country: US (occurrence: US)
  Receive Date: 20240816
  Receipt Date: 20240816
  Transmission Date: 20241017
  Serious: Yes (Hospitalization)
  Sender: MYLAN
  Company Number: US-MYLANLABS-2024M1074210

PATIENT
  Age: 4 Decade
  Sex: Male

DRUGS (3)
  1. AMIODARONE [Suspect]
     Active Substance: AMIODARONE
     Indication: Ventricular extrasystoles
     Dosage: 150 MILLIGRAM; LOADING DOSE OVER 10 MINUTES
     Route: 042
  2. EPINEPHRINE [Concomitant]
     Active Substance: EPINEPHRINE
     Indication: Hypotension
     Dosage: UNK
     Route: 065
  3. LIDOCAINE [Concomitant]
     Active Substance: LIDOCAINE
     Indication: Ventricular extrasystoles
     Dosage: 1 MILLIGRAM, QMINUTE (INFUSION)
     Route: 065

REACTIONS (2)
  - Kounis syndrome [Recovering/Resolving]
  - Myocardial injury [Recovering/Resolving]
